FAERS Safety Report 8215369-X (Version None)
Quarter: 2012Q1

REPORT INFORMATION
  Report Type: 
  Country: None (occurrence: None)
  Receive Date: 20120316
  Receipt Date: 20120312
  Transmission Date: 20120608
  Serious: Yes (Other)
  Sender: FDA-Public Use
  Company Number: US-PFIZER INC-2011309352

PATIENT
  Sex: Male
  Weight: 4.8 kg

DRUGS (4)
  1. EPOGEN [Concomitant]
     Dosage: UNK
  2. GENOTROPIN [Suspect]
     Dosage: 0.5 MG, DAILY
     Route: 058
  3. GENOTROPIN [Suspect]
     Indication: GROWTH RETARDATION
     Dosage: 0.4 MG, 1X/DAY
     Route: 058
  4. GENOTROPIN [Suspect]
     Dosage: 0.5 MG, 1X/DAY
     Route: 058
     Dates: end: 20111217

REACTIONS (7)
  - IRRITABILITY [None]
  - FATIGUE [None]
  - WEIGHT INCREASED [None]
  - INCORRECT DOSE ADMINISTERED [None]
  - MOOD SWINGS [None]
  - RENAL DISORDER [None]
  - CIRCUMSTANCE OR INFORMATION CAPABLE OF LEADING TO MEDICATION ERROR [None]
